FAERS Safety Report 25637606 (Version 1)
Quarter: 2025Q3

REPORT INFORMATION
  Report Type: Spontaneous
  Country: EU (occurrence: EU)
  Receive Date: 20250804
  Receipt Date: 20250804
  Transmission Date: 20251021
  Serious: Yes (Hospitalization)
  Sender: ACCORD
  Company Number: None

PATIENT
  Age: 63 Year
  Sex: Female
  Weight: 50 kg

DRUGS (5)
  1. CARBOPLATIN [Suspect]
     Active Substance: CARBOPLATIN
     Indication: Lung neoplasm malignant
     Dates: start: 20211227
  2. ETOPOSIDE [Suspect]
     Active Substance: ETOPOSIDE
     Indication: Lung neoplasm malignant
     Dates: start: 20211227, end: 20211229
  3. DEXAMETHASONE [Concomitant]
     Active Substance: DEXAMETHASONE
     Indication: Lung neoplasm malignant
     Dates: start: 20211230, end: 20220101
  4. FILGRASTIM [Concomitant]
     Active Substance: FILGRASTIM
     Indication: Lung neoplasm malignant
     Dates: start: 20211230, end: 20220103
  5. ENOXAPARIN [Concomitant]
     Active Substance: ENOXAPARIN
     Indication: Lung neoplasm malignant
     Dates: start: 20211230

REACTIONS (3)
  - Asthenia [Unknown]
  - Palpitations [Unknown]
  - Haemoglobin abnormal [Unknown]

NARRATIVE: CASE EVENT DATE: 20220107
